FAERS Safety Report 10402124 (Version 5)
Quarter: 2014Q4

REPORT INFORMATION
  Report Type: Report from Study
  Country: US (occurrence: US)
  Receive Date: 20140822
  Receipt Date: 20141209
  Transmission Date: 20150528
  Serious: Yes (Hospitalization)
  Sender: FDA-Public Use
  Company Number: US-ACTELION-A-US2014-103925

PATIENT
  Age: 89 Year
  Sex: Female

DRUGS (18)
  1. TRACLEER [Suspect]
     Active Substance: BOSENTAN\BOSENTAN MONOHYDRATE
     Indication: PULMONARY ARTERIAL HYPERTENSION
     Dosage: 125 MG, BID
     Route: 048
  2. BUMEX [Concomitant]
     Active Substance: BUMETANIDE
     Dosage: 1 MG, BID
  3. DIOVAN [Concomitant]
     Active Substance: VALSARTAN
     Dosage: 80 MG, BID
  4. COLACE [Concomitant]
     Active Substance: DOCUSATE SODIUM
  5. CARDIZEM [Concomitant]
     Active Substance: DILTIAZEM HYDROCHLORIDE
     Dosage: 120 MG, BID
  6. NORTRIPTYLINE [Concomitant]
     Active Substance: NORTRIPTYLINE
     Dosage: 10 MG, BID
  7. AVAPRO [Concomitant]
     Active Substance: IRBESARTAN
  8. PROTONIX [Concomitant]
     Active Substance: PANTOPRAZOLE SODIUM
  9. IRON SULFATE [Concomitant]
     Active Substance: FERROUS SULFATE ANHYDROUS
  10. DIGOXIN. [Suspect]
     Active Substance: DIGOXIN
     Indication: PRODUCT USED FOR UNKNOWN INDICATION
     Dosage: 125 MG, QD
     Route: 065
  11. ATIVAN [Concomitant]
     Active Substance: LORAZEPAM
  12. SYNTHROID [Concomitant]
     Active Substance: LEVOTHYROXINE SODIUM
  13. VICODIN [Concomitant]
     Active Substance: ACETAMINOPHEN\HYDROCODONE BITARTRATE
  14. FLUTICASONE [Concomitant]
     Active Substance: FLUTICASONE\FLUTICASONE PROPIONATE
  15. OXYGEN. [Concomitant]
     Active Substance: OXYGEN
  16. LASIX [Concomitant]
     Active Substance: FUROSEMIDE
  17. ASPIRIN. [Concomitant]
     Active Substance: ASPIRIN
  18. SILDENAFIL. [Concomitant]
     Active Substance: SILDENAFIL
     Dosage: 20 MG, TID

REACTIONS (13)
  - Acute kidney injury [Recovering/Resolving]
  - Oedema peripheral [Unknown]
  - Asthenia [Unknown]
  - Pleural effusion [Unknown]
  - Fall [Recovering/Resolving]
  - Pain in extremity [Unknown]
  - Renal function test abnormal [Unknown]
  - Nausea [Recovering/Resolving]
  - Atrial fibrillation [Unknown]
  - Pneumonia aspiration [Recovering/Resolving]
  - Urinary tract infection [Recovering/Resolving]
  - Fatigue [Recovering/Resolving]
  - Cardiac failure congestive [Recovering/Resolving]

NARRATIVE: CASE EVENT DATE: 20140907
